FAERS Safety Report 7731107-9 (Version None)
Quarter: 2011Q3

REPORT INFORMATION
  Report Type: 
  Country: None (occurrence: None)
  Receive Date: 20110906
  Receipt Date: 20110906
  Transmission Date: 20111222
  Serious: Yes (Other)
  Sender: FDA-Public Use
  Company Number: None

PATIENT
  Age: 48 Year
  Sex: Female
  Weight: 60.327 kg

DRUGS (1)
  1. OXCARBAZEPINE [Suspect]
     Indication: EPILEPSY
     Dosage: 150 MG/A.M. + 300 MG/P,M,
     Route: 048
     Dates: start: 20110817, end: 20110901

REACTIONS (7)
  - DRUG HYPERSENSITIVITY [None]
  - RASH [None]
  - MYALGIA [None]
  - ARTHRALGIA [None]
  - LIP SWELLING [None]
  - STOMATITIS [None]
  - OROPHARYNGEAL PAIN [None]
